FAERS Safety Report 6614502-0 (Version None)
Quarter: 2010Q1

REPORT INFORMATION
  Report Type: 
  Country: None (occurrence: None)
  Receive Date: 20100304
  Receipt Date: 20100128
  Transmission Date: 20100710
  Serious: Yes (Hospitalization)
  Sender: FDA-Public Use
  Company Number: CG-MERCK-1001USA03830

PATIENT
  Age: 30 Year
  Sex: Male
  Weight: 32 kg

DRUGS (1)
  1. STROMECTOL [Suspect]
     Indication: ONCHOCERCIASIS
     Route: 065
     Dates: start: 20090312, end: 20090312

REACTIONS (6)
  - AGITATION [None]
  - ASTHENIA [None]
  - BACK PAIN [None]
  - CONVULSION [None]
  - HEADACHE [None]
  - PYREXIA [None]
